FAERS Safety Report 22021259 (Version 1)
Quarter: 2023Q1

REPORT INFORMATION
  Report Type: Report from Study
  Country: US (occurrence: US)
  Receive Date: 20230222
  Receipt Date: 20230222
  Transmission Date: 20230418
  Serious: Yes (Other)
  Sender: FDA-Public Use
  Company Number: US-ABBVIE-4309013

PATIENT
  Age: 75 Year
  Sex: Female
  Weight: 42 kg

DRUGS (8)
  1. DUOPA [Suspect]
     Active Substance: CARBIDOPA\LEVODOPA
     Indication: Parkinson^s disease
     Route: 050
     Dates: start: 20161105
  2. DUOPA [Suspect]
     Active Substance: CARBIDOPA\LEVODOPA
  3. ZONISAMIDE [Concomitant]
     Active Substance: ZONISAMIDE
     Indication: Dyskinesia
     Route: 048
  4. SINEMET [Concomitant]
     Active Substance: CARBIDOPA\LEVODOPA
     Indication: Parkinson^s disease
     Dosage: 25-100 MG
     Route: 048
  5. SINEMET [Concomitant]
     Active Substance: CARBIDOPA\LEVODOPA
     Indication: Parkinson^s disease
     Dosage: 25-100 MG
     Route: 048
  6. SINEMET [Concomitant]
     Active Substance: CARBIDOPA\LEVODOPA
     Indication: Parkinson^s disease
     Dosage: 25-100 MG
     Route: 048
  7. CLONAZEPAM [Concomitant]
     Active Substance: CLONAZEPAM
     Indication: Muscle spasms
     Route: 048
  8. SACCHAROMYCES CEREVISIAE [Concomitant]
     Active Substance: SACCHAROMYCES CEREVISIAE
     Indication: Probiotic therapy
     Route: 048

REACTIONS (8)
  - Wrist fracture [Recovering/Resolving]
  - Fall [Not Recovered/Not Resolved]
  - On and off phenomenon [Not Recovered/Not Resolved]
  - Malaise [Not Recovered/Not Resolved]
  - Device difficult to use [Not Recovered/Not Resolved]
  - Urinary tract infection [Recovered/Resolved]
  - Muscle spasms [Not Recovered/Not Resolved]
  - Dyskinesia [Unknown]

NARRATIVE: CASE EVENT DATE: 20221224
